FAERS Safety Report 6522608-X (Version None)
Quarter: 2009Q4

REPORT INFORMATION
  Report Type: 
  Country: None (occurrence: None)
  Receive Date: 20091230
  Receipt Date: 20091217
  Transmission Date: 20100525
  Serious: Yes (Other)
  Sender: FDA-Public Use
  Company Number: PHHY2009FR54997

PATIENT
  Age: 60 Year
  Sex: Female

DRUGS (5)
  1. INTERFERON BETA-1B [Suspect]
     Indication: MULTIPLE SCLEROSIS
     Dosage: 12 MU, QW3
     Route: 058
  2. INTERFERON BETA-1B [Suspect]
     Dosage: 6 MU, QW3
     Route: 058
     Dates: start: 20030101
  3. INTERFERON BETA-1B [Suspect]
     Dosage: 12 MU, QW3
     Route: 058
     Dates: start: 20040101
  4. INTERFERON BETA-1B [Suspect]
     Dosage: 6 MU, QW3
     Route: 058
     Dates: start: 20041201, end: 20050101
  5. CORTICOSTEROIDS [Concomitant]

REACTIONS (12)
  - ABDOMINAL PAIN [None]
  - ARTHRALGIA [None]
  - ASTHENIA [None]
  - COLITIS [None]
  - CROHN'S DISEASE [None]
  - DIARRHOEA [None]
  - EPISCLERITIS [None]
  - MUCOSAL INFLAMMATION [None]
  - MUCOSAL ULCERATION [None]
  - PAIN [None]
  - PYREXIA [None]
  - RECTAL HAEMORRHAGE [None]
